FAERS Safety Report 7830186-8 (Version None)
Quarter: 2011Q4

REPORT INFORMATION
  Report Type: 
  Country: None (occurrence: None)
  Receive Date: 20111021
  Receipt Date: 20111013
  Transmission Date: 20120403
  Serious: Yes (Death, Other)
  Sender: FDA-Public Use
  Company Number: PHHY2011PL86130

PATIENT
  Sex: Female

DRUGS (1)
  1. LETROZOLE [Suspect]
     Dosage: 2.5 MG, UNK
     Route: 048
     Dates: start: 20061212, end: 20070126

REACTIONS (3)
  - DEATH [None]
  - METASTASIS [None]
  - METASTATIC NEOPLASM [None]
